FAERS Safety Report 5988889-6 (Version None)
Quarter: 2008Q4

REPORT INFORMATION
  Report Type: 
  Country: None (occurrence: None)
  Receive Date: 20081210
  Receipt Date: 20080414
  Transmission Date: 20090506
  Serious: Yes (Other)
  Sender: FDA-Public Use
  Company Number: US-AMGEN-STX270453

PATIENT
  Sex: Female
  Weight: 102.6 kg

DRUGS (12)
  1. ENBREL [Suspect]
     Indication: RHEUMATOID ARTHRITIS
     Route: 058
     Dates: start: 19991101, end: 20071101
  2. PREDNISONE TAB [Concomitant]
     Indication: RHEUMATOID ARTHRITIS
     Route: 048
     Dates: start: 20060901, end: 20071101
  3. PERCOCET [Concomitant]
     Route: 048
  4. FLEXERIL [Concomitant]
     Route: 048
     Dates: start: 20070501, end: 20071101
  5. EFFEXOR [Concomitant]
     Route: 048
     Dates: start: 20040701
  6. NEXIUM [Concomitant]
     Route: 048
  7. NORVASC [Concomitant]
     Route: 048
  8. ENABLEX [Concomitant]
     Route: 048
     Dates: start: 20060201
  9. ADDERALL 10 [Concomitant]
     Route: 048
     Dates: start: 20060901
  10. CALCIUM WITH VITAMIN D [Concomitant]
  11. IRON [Concomitant]
  12. VITAMIN B [Concomitant]

REACTIONS (1)
  - LUNG CARCINOMA CELL TYPE UNSPECIFIED STAGE III [None]
